FAERS Safety Report 17451958 (Version 1)
Quarter: 2020Q1

REPORT INFORMATION
  Report Type: Spontaneous
  Country: FR (occurrence: FR)
  Receive Date: 20200224
  Receipt Date: 20200224
  Transmission Date: 20200409
  Serious: Yes (Hospitalization)
  Sender: FDA-Public Use
  Company Number: FR-PFIZER INC-2020074923

PATIENT
  Age: 67 Year
  Sex: Male

DRUGS (7)
  1. EFFEXOR LP [Suspect]
     Active Substance: VENLAFAXINE HYDROCHLORIDE
     Indication: MENTAL DISORDER
     Dosage: 37.5 MG, 1X/DAY
     Route: 048
  2. ALDACTONE [Suspect]
     Active Substance: SPIRONOLACTONE
     Indication: HYPERTENSION
     Dosage: 25 MG, 1X/DAY
     Route: 048
  3. LERCAN [Concomitant]
     Active Substance: LERCANIDIPINE
     Dosage: UNK
  4. GELTIM [Concomitant]
     Active Substance: TIMOLOL MALEATE
     Dosage: UNK
  5. XEROQUEL [Suspect]
     Active Substance: QUETIAPINE FUMARATE
     Indication: MENTAL DISORDER
     Dosage: 300 MG, 1X/DAY
     Route: 048
  6. SERESTA [Concomitant]
     Active Substance: OXAZEPAM
     Dosage: UNK
  7. LIPANTHYL [Suspect]
     Active Substance: FENOFIBRATE
     Indication: HYPERCHOLESTEROLAEMIA
     Dosage: 145 MG, 1X/DAY
     Route: 048

REACTIONS (1)
  - Pancreatitis [Recovered/Resolved]

NARRATIVE: CASE EVENT DATE: 20200104
